FAERS Safety Report 6496594-5 (Version None)
Quarter: 2009Q4

REPORT INFORMATION
  Report Type: 
  Country: None (occurrence: None)
  Receive Date: 20091214
  Receipt Date: 20091202
  Transmission Date: 20100525
  Serious: Yes (Other)
  Sender: FDA-Public Use
  Company Number: SE-MERCK-0912SWE00004

PATIENT
  Age: 14 Year
  Sex: Female

DRUGS (1)
  1. ZETIA [Suspect]
     Indication: TYPE IIA HYPERLIPIDAEMIA
     Route: 048
     Dates: start: 20090401, end: 20091127

REACTIONS (2)
  - DEPRESSION [None]
  - SUICIDAL IDEATION [None]
